FAERS Safety Report 14695810 (Version 5)
Quarter: 2018Q4

REPORT INFORMATION
  Report Type: Report from Study
  Country: US (occurrence: US)
  Receive Date: 20180329
  Receipt Date: 20181031
  Transmission Date: 20190204
  Serious: Yes (Death, Hospitalization, Other)
  Sender: FDA-Public Use
  Company Number: US-ACTELION-A-NJ2018-169768

PATIENT
  Age: 84 Year
  Sex: Female
  Weight: 82.54 kg

DRUGS (3)
  1. ADEMPAS [Concomitant]
     Active Substance: RIOCIGUAT
  2. WARFARIN [Concomitant]
     Active Substance: WARFARIN
  3. OPSUMIT [Suspect]
     Active Substance: MACITENTAN
     Indication: PULMONARY HYPERTENSION
     Dosage: 10 MG, QD
     Route: 048

REACTIONS (6)
  - Fall [Unknown]
  - Respiratory failure [Fatal]
  - Oxygen saturation decreased [Unknown]
  - Gait inability [Unknown]
  - Dyspnoea [Fatal]
  - Asthenia [Unknown]
